FAERS Safety Report 17127583 (Version 1)
Quarter: 2019Q4

REPORT INFORMATION
  Report Type: Spontaneous
  Country: US (occurrence: US)
  Receive Date: 20191206
  Receipt Date: 20191206
  Transmission Date: 20200122
  Serious: Yes (Life-Threatening, Disabling)
  Sender: FDA-Public Use
  Company Number: None

PATIENT
  Age: 27 Year
  Sex: Male
  Weight: 108 kg

DRUGS (1)
  1. ICY HOT [Suspect]
     Active Substance: MENTHOL\METHYL SALICYLATE
     Indication: BACK PAIN
     Dosage: ?          QUANTITY:1 LAYER;?
     Route: 061

REACTIONS (6)
  - Application site rash [None]
  - Chest pain [None]
  - Pain in extremity [None]
  - Application site erythema [None]
  - Application site vesicles [None]
  - Back pain [None]

NARRATIVE: CASE EVENT DATE: 20191202
